FAERS Safety Report 20390227 (Version 1)
Quarter: 2022Q1

REPORT INFORMATION
  Report Type: Report from Study
  Country: GB (occurrence: GB)
  Receive Date: 20220128
  Receipt Date: 20220128
  Transmission Date: 20220423
  Serious: Yes (Death, Hospitalization, Other)
  Sender: FDA-Public Use
  Company Number: GB-ROCHE-2844793

PATIENT
  Age: 53 Year
  Sex: Female

DRUGS (40)
  1. CAPECITABINE [Suspect]
     Active Substance: CAPECITABINE
     Dosage: 3300 MILLIGRAM DAILY; 1650MG
     Route: 048
     Dates: start: 20201211, end: 20210120
  2. NERATINIB [Suspect]
     Active Substance: NERATINIB
     Indication: Breast cancer metastatic
     Dosage: 200 MILLIGRAM DAILY;
     Route: 048
     Dates: start: 20210202, end: 20210224
  3. NERATINIB [Suspect]
     Active Substance: NERATINIB
     Dosage: 200 MILLIGRAM DAILY;
     Route: 048
     Dates: start: 20210514
  4. NERATINIB [Suspect]
     Active Substance: NERATINIB
     Dosage: 240 MILLIGRAM DAILY;
     Route: 048
     Dates: start: 20210225, end: 20210409
  5. NERATINIB [Suspect]
     Active Substance: NERATINIB
     Dosage: 160 MILLIGRAM DAILY;
     Route: 048
     Dates: start: 20210121, end: 20210201
  6. TRASTUZUMAB [Suspect]
     Active Substance: TRASTUZUMAB
     Indication: Breast cancer metastatic
     Dosage: 600MG
     Route: 058
     Dates: start: 20160506, end: 20180122
  7. TRASTUZUMAB DERUXTECAN [Suspect]
     Active Substance: TRASTUZUMAB DERUXTECAN
     Indication: Breast cancer metastatic
     Dosage: 240MG
     Route: 042
     Dates: start: 20211022, end: 20211202
  8. ADO-TRASTUZUMAB EMTANSINE [Suspect]
     Active Substance: ADO-TRASTUZUMAB EMTANSINE
     Indication: Breast cancer metastatic
     Dosage: 220MG
     Route: 042
     Dates: start: 20180309, end: 20201106
  9. CAPECITABINE [Suspect]
     Active Substance: CAPECITABINE
     Indication: Breast cancer metastatic
     Dosage: 2600 MILLIGRAM DAILY;
     Route: 048
     Dates: start: 20210121
  10. CEFUROXIME [Concomitant]
     Active Substance: CEFUROXIME
     Dosage: 1.5MG
     Route: 042
     Dates: start: 20180212, end: 20180212
  11. SODIUM FLUORIDE [Concomitant]
     Active Substance: SODIUM FLUORIDE
     Route: 048
     Dates: start: 20210202
  12. CYCLIZINE [Concomitant]
     Active Substance: CYCLIZINE
     Dosage: 50MG
     Route: 042
     Dates: start: 20180212, end: 20180212
  13. DEXAMETHASONE [Concomitant]
     Active Substance: DEXAMETHASONE
     Dosage: 13.2 MILLIGRAM DAILY; 6.6MG
     Route: 065
     Dates: start: 20211013, end: 20211013
  14. DEXAMETHASONE [Concomitant]
     Active Substance: DEXAMETHASONE
     Dosage: 2MG
     Route: 048
     Dates: start: 201802, end: 201803
  15. DEXAMETHASONE [Concomitant]
     Active Substance: DEXAMETHASONE
     Dosage: 4MG
     Route: 048
     Dates: start: 20180214, end: 20180214
  16. DEXAMETHASONE [Concomitant]
     Active Substance: DEXAMETHASONE
     Dosage: 6MG
     Route: 048
     Dates: start: 20211014
  17. DEXAMETHASONE [Concomitant]
     Active Substance: DEXAMETHASONE
     Dosage: 8 MILLIGRAM DAILY; 4MG
     Route: 048
     Dates: start: 20180212, end: 20180213
  18. DEXAMETHASONE [Concomitant]
     Active Substance: DEXAMETHASONE
     Dosage: 3,3MG
     Route: 065
     Dates: start: 20211012, end: 20211012
  19. DEXTROSE [Concomitant]
     Active Substance: DEXTROSE
     Dosage: 1000ML
     Route: 042
     Dates: start: 20211014, end: 20211014
  20. LOPERAMIDE [Concomitant]
     Active Substance: LOPERAMIDE
     Dosage: 2MG
     Route: 048
     Dates: start: 20201211
  21. METOCLOPRAMIDE [Concomitant]
     Active Substance: METOCLOPRAMIDE
     Dosage: 10MG
     Route: 048
     Dates: start: 20201211
  22. MORPHINE [Concomitant]
     Active Substance: MORPHINE
     Dosage: 6 MILLIGRAM DAILY; 2MG
     Route: 042
     Dates: start: 20180212, end: 20180212
  23. MORPHINE SULFATE [Concomitant]
     Active Substance: MORPHINE SULFATE
     Dosage: 2MG
     Route: 048
     Dates: start: 20211015
  24. SODIUM CHLORIDE [Concomitant]
     Active Substance: SODIUM CHLORIDE
     Dosage: 2000ML
     Route: 042
     Dates: start: 20211012, end: 20211013
  25. SODIUM CHLORIDE [Concomitant]
     Active Substance: SODIUM CHLORIDE
     Dosage: 1000ML
     Route: 042
     Dates: start: 20180212, end: 20180212
  26. OMEPRAZOLE [Concomitant]
     Active Substance: OMEPRAZOLE
     Dosage: 20 MILLIGRAM DAILY;
     Route: 048
     Dates: start: 20180212, end: 20180214
  27. OMEPRAZOLE [Concomitant]
     Active Substance: OMEPRAZOLE
     Dosage: 40MG
     Route: 048
     Dates: start: 20211014
  28. OMEPRAZOLE [Concomitant]
     Active Substance: OMEPRAZOLE
     Dosage: 40MG
     Route: 042
     Dates: start: 20211012
  29. ACETAMINOPHEN [Concomitant]
     Active Substance: ACETAMINOPHEN
     Route: 048
     Dates: start: 202110, end: 202110
  30. ACETAMINOPHEN [Concomitant]
     Active Substance: ACETAMINOPHEN
     Dosage: 1000MG
     Route: 042
     Dates: start: 20180212, end: 20180212
  31. ACETAMINOPHEN [Concomitant]
     Active Substance: ACETAMINOPHEN
     Dosage: 4000 MILLIGRAM DAILY; 1000MG
     Route: 048
     Dates: start: 20180212, end: 20180214
  32. MAGNESIUM CHLORIDE [Concomitant]
     Active Substance: MAGNESIUM CHLORIDE
     Dosage: 1000ML
     Route: 042
     Dates: start: 20180212, end: 20180212
  33. POTASSIUM CHLORIDE [Concomitant]
     Active Substance: POTASSIUM CHLORIDE
     Dosage: 1000ML
     Route: 042
     Dates: start: 20180212, end: 20180212
  34. SODIUM ACETATE [Concomitant]
     Active Substance: SODIUM ACETATE
     Dosage: 1000ML
     Route: 042
     Dates: start: 20180212, end: 20180212
  35. SODIUM GLUCONATE [Concomitant]
     Active Substance: SODIUM GLUCONATE
     Dosage: 1000ML
     Route: 042
     Dates: start: 20180212, end: 20180212
  36. ZOLEDRONIC ACID [Concomitant]
     Active Substance: ZOLEDRONIC ACID
     Dosage: 4MG
     Route: 042
     Dates: start: 20170102, end: 20170102
  37. BUDESONIDE [Concomitant]
     Active Substance: BUDESONIDE
  38. REMIFENTANIL [Concomitant]
     Active Substance: REMIFENTANIL
  39. METARAMINOL [Concomitant]
     Active Substance: METARAMINOL
  40. codine phosphate [Concomitant]

REACTIONS (4)
  - Pneumonitis [Fatal]
  - Pulmonary embolism [Fatal]
  - Somnolence [Recovered/Resolved with Sequelae]
  - Diarrhoea [Recovered/Resolved]

NARRATIVE: CASE EVENT DATE: 20210401
